FAERS Safety Report 6327141-6 (Version None)
Quarter: 2009Q3

REPORT INFORMATION
  Report Type: 
  Country: None (occurrence: None)
  Receive Date: 20090825
  Receipt Date: 20090820
  Transmission Date: 20100115
  Serious: Yes (Congenital Anomaly)
  Sender: FDA-Public Use
  Company Number: A0803823A

PATIENT
  Sex: Male

DRUGS (4)
  1. LAMOTRIGINE [Suspect]
     Indication: EPILEPSY
     Dosage: 100MG PER DAY
  2. DEPAKOTE [Suspect]
     Indication: EPILEPSY
  3. ALCOHOL [Suspect]
  4. TOBACCO [Suspect]

REACTIONS (12)
  - ATRIAL SEPTAL DEFECT [None]
  - CLINODACTYLY [None]
  - CONGENITAL EYE DISORDER [None]
  - CONGENITAL HYDROCEPHALUS [None]
  - CORNEAL OPACITY [None]
  - DRUG EXPOSURE DURING PREGNANCY [None]
  - FINGER HYPOPLASIA [None]
  - MENINGOMYELOCELE [None]
  - PATENT DUCTUS ARTERIOSUS [None]
  - SPINA BIFIDA [None]
  - SYNDACTYLY [None]
  - TALIPES [None]
